FAERS Safety Report 8797612 (Version 1)
Quarter: 2012Q4

REPORT INFORMATION
  Report Type: 
  Country: US (occurrence: US)
  Receive Date: 20120920
  Receipt Date: 20120920
  Transmission Date: 20130627
  Serious: Yes (Other)
  Sender: FDA-Public Use
  Company Number: US-JNJFOC-20120904055

PATIENT
  Age: 35 Year
  Sex: Female

DRUGS (4)
  1. TOPAMAX [Suspect]
     Indication: MOOD SWINGS
     Route: 048
     Dates: start: 2011, end: 201209
  2. TOPAMAX [Suspect]
     Indication: MIGRAINE PROPHYLAXIS
     Route: 048
     Dates: start: 2011, end: 201209
  3. ZOLOFT [Concomitant]
     Indication: OBSESSIVE-COMPULSIVE DISORDER
     Route: 048
     Dates: start: 2002
  4. ATIVAN [Concomitant]
     Indication: ANXIETY
     Route: 048

REACTIONS (2)
  - Infectious mononucleosis [Recovered/Resolved]
  - Headache [Recovered/Resolved]
